FAERS Safety Report 5512187-8 (Version None)
Quarter: 2007Q4

REPORT INFORMATION
  Report Type: 
  Country: None (occurrence: None)
  Receive Date: 20071112
  Receipt Date: 20071102
  Transmission Date: 20080405
  Serious: Yes (Hospitalization, Other)
  Sender: FDA-Public Use
  Company Number: PHBS2007US18442

PATIENT
  Age: 56 Year
  Sex: Female

DRUGS (1)
  1. METOPROLOL TARTRATE [Suspect]
     Dosage: 100 MG/DAY

REACTIONS (13)
  - AKINESIA [None]
  - BLOOD CREATINE PHOSPHOKINASE MB INCREASED [None]
  - BRADYCARDIA [None]
  - CATHETERISATION CARDIAC [None]
  - CHEST DISCOMFORT [None]
  - CORONARY ARTERY DISEASE [None]
  - CORONARY OSTIAL STENOSIS [None]
  - ELECTROCARDIOGRAM ST SEGMENT ELEVATION [None]
  - LEFT VENTRICULAR HYPERTROPHY [None]
  - STRESS CARDIOMYOPATHY [None]
  - TROPONIN T INCREASED [None]
  - VENTRICULAR DYSFUNCTION [None]
  - VENTRICULAR HYPERTROPHY [None]
